FAERS Safety Report 20663893 (Version 1)
Quarter: 2022Q2

REPORT INFORMATION
  Report Type: Spontaneous
  Country: US (occurrence: None)
  Receive Date: 20220401
  Receipt Date: 20220401
  Transmission Date: 20220721
  Serious: No
  Sender: FDA-Public Use
  Company Number: None

PATIENT
  Age: 74 Year
  Sex: Male

DRUGS (1)
  1. LEXISCAN [Suspect]
     Active Substance: REGADENOSON
     Indication: Cardiac stress test
     Dosage: FREQUENCY : ONCE;?
     Route: 042
     Dates: start: 20220310, end: 20220310

REACTIONS (7)
  - Dyspnoea [None]
  - Nausea [None]
  - Dizziness [None]
  - Drug ineffective [None]
  - Loss of consciousness [None]
  - Heart rate decreased [None]
  - Blood pressure decreased [None]

NARRATIVE: CASE EVENT DATE: 20220310
